FAERS Safety Report 24775792 (Version 2)
Quarter: 2025Q1

REPORT INFORMATION
  Report Type: Spontaneous
  Country: US (occurrence: US)
  Receive Date: 20241226
  Receipt Date: 20250106
  Transmission Date: 20250409
  Serious: Yes (Life-Threatening, Hospitalization)
  Sender: TEVA
  Company Number: US-TEVA-VS-3277001

PATIENT
  Age: 55 Year
  Sex: Female

DRUGS (2)
  1. MELPHALAN [Suspect]
     Active Substance: MELPHALAN
     Indication: Plasma cell myeloma
     Route: 065
  2. TECLISTAMAB [Suspect]
     Active Substance: TECLISTAMAB
     Indication: Plasma cell myeloma refractory
     Route: 065

REACTIONS (10)
  - Cardiac tamponade [Recovering/Resolving]
  - Hypotension [Recovering/Resolving]
  - Pericardial effusion [Recovering/Resolving]
  - Carditis [Recovering/Resolving]
  - Tachycardia [Recovering/Resolving]
  - Atrial fibrillation [Recovering/Resolving]
  - Chest discomfort [Recovering/Resolving]
  - Obstructive shock [Recovering/Resolving]
  - Drug ineffective [Unknown]
  - Dyspnoea [Recovering/Resolving]
